FAERS Safety Report 23354367 (Version 2)
Quarter: 2024Q1

REPORT INFORMATION
  Report Type: Spontaneous
  Country: PT (occurrence: PT)
  Receive Date: 20240101
  Receipt Date: 20240104
  Transmission Date: 20240410
  Serious: Yes (Hospitalization, Other)
  Sender: FDA-Public Use
  Company Number: PT-TAKEDA-2023TUS124482

PATIENT
  Age: 50 Year
  Sex: Female

DRUGS (1)
  1. COLCHICINE [Suspect]
     Active Substance: COLCHICINE
     Indication: Product used for unknown indication
     Dosage: 10 MILLIGRAM
     Route: 065

REACTIONS (18)
  - Overdose [Unknown]
  - Cardiac dysfunction [Unknown]
  - Cholestasis [Unknown]
  - Respiratory failure [Unknown]
  - Thrombocytopenia [Unknown]
  - Leukopenia [Unknown]
  - Acute kidney injury [Unknown]
  - Toxicity to various agents [Unknown]
  - Pleural effusion [Unknown]
  - Lymphopenia [Unknown]
  - Pyrexia [Unknown]
  - Alopecia [Unknown]
  - Nausea [Unknown]
  - Vomiting [Unknown]
  - Diarrhoea [Recovered/Resolved]
  - Leukocytosis [Unknown]
  - Neutrophilia [Unknown]
  - Pleural effusion [Unknown]
